FAERS Safety Report 6603528-9 (Version None)
Quarter: 2010Q1

REPORT INFORMATION
  Report Type: 
  Country: None (occurrence: None)
  Receive Date: 20100226
  Receipt Date: 20090824
  Transmission Date: 20100710
  Serious: No
  Sender: FDA-Public Use
  Company Number: A0804988A

PATIENT
  Sex: Female

DRUGS (2)
  1. VALTREX [Suspect]
     Route: 048
  2. ZOVIRAX [Suspect]
     Route: 065

REACTIONS (4)
  - DRUG INEFFECTIVE [None]
  - HERPES VIRUS INFECTION [None]
  - LIP SWELLING [None]
  - PARAESTHESIA ORAL [None]
